FAERS Safety Report 24753166 (Version 1)
Quarter: 2024Q4

REPORT INFORMATION
  Report Type: Spontaneous
  Country: US (occurrence: US)
  Receive Date: 20241219
  Receipt Date: 20241219
  Transmission Date: 20250115
  Serious: No
  Sender: PACIRA
  Company Number: US-ORG100016242-2023000352

PATIENT
  Age: 80 Year
  Sex: Male

DRUGS (3)
  1. EXPAREL [Suspect]
     Active Substance: BUPIVACAINE
     Indication: Knee arthroplasty
     Dosage: 10 ML OF EXPAREL ADMIXED WITH 20 ML OF 0.25% BUPIVACAINE, ONE KNEE, PRE-OPERATIVELY
     Route: 065
     Dates: start: 20231211, end: 20231211
  2. EXPAREL [Suspect]
     Active Substance: BUPIVACAINE
     Indication: Knee arthroplasty
     Dosage: 20 ML OF EXPAREL AROUND THE KNEE TISSUE, ONE KNEE
     Route: 050
     Dates: start: 20231211, end: 20231211
  3. BUPIVACAINE [Suspect]
     Active Substance: BUPIVACAINE
     Indication: Knee arthroplasty
     Dosage: 10 ML OF EXPAREL ADMIXED WITH 20 ML OF 0.25% BUPIVACAINE
     Route: 065
     Dates: start: 20231211, end: 20231211

REACTIONS (3)
  - No adverse event [Unknown]
  - Product use issue [Unknown]
  - Off label use [Unknown]

NARRATIVE: CASE EVENT DATE: 20231211
